FAERS Safety Report 7740675-2 (Version None)
Quarter: 2011Q3

REPORT INFORMATION
  Report Type: 
  Country: None (occurrence: None)
  Receive Date: 20110909
  Receipt Date: 20110831
  Transmission Date: 20111222
  Serious: Yes (Other)
  Sender: FDA-Public Use
  Company Number: CA-JNJFOC-20110811502

PATIENT
  Sex: Female

DRUGS (2)
  1. REMICADE [Suspect]
     Indication: RHEUMATOID ARTHRITIS
     Dosage: 2ND DOSE (WEEK 2)
     Route: 042
     Dates: start: 20110808
  2. REMICADE [Suspect]
     Dosage: 1ST DOSE (WEEK 0)
     Route: 042
     Dates: start: 20110725

REACTIONS (10)
  - JOINT SWELLING [None]
  - MUSCULOSKELETAL PAIN [None]
  - PAIN [None]
  - MYALGIA [None]
  - PAIN IN EXTREMITY [None]
  - BURNING SENSATION [None]
  - RASH [None]
  - ARTHRALGIA [None]
  - MUSCLE SWELLING [None]
  - FATIGUE [None]
